FAERS Safety Report 7810714-9 (Version None)
Quarter: 2011Q4

REPORT INFORMATION
  Report Type: 
  Country: None (occurrence: None)
  Receive Date: 20111013
  Receipt Date: 20110930
  Transmission Date: 20120403
  Serious: Yes (Hospitalization, Other)
  Sender: FDA-Public Use
  Company Number: IT-PAR PHARMACEUTICAL, INC-2011SCPR003270

PATIENT

DRUGS (15)
  1. CLOZAPINE [Concomitant]
     Dosage: UPTO 900 MG/DAY
     Route: 065
     Dates: end: 20100601
  2. AMOXICILLIN [Concomitant]
     Indication: PRODUCT USED FOR UNKNOWN INDICATION
     Dosage: 2 G/DAY
     Route: 065
  3. RISPERIDONE [Suspect]
     Dosage: 4 MG/D
     Route: 065
  4. HALOPERIDOL [Concomitant]
     Dosage: UPTO 10 MG/DAY
     Route: 065
  5. AMISULPRIDE [Concomitant]
     Indication: SCHIZOPHRENIA, DISORGANISED TYPE
     Dosage: UPTO 1200 MG/DAY
     Route: 065
  6. CLOZAPINE [Concomitant]
     Indication: SCHIZOPHRENIA, DISORGANISED TYPE
     Dosage: UNK, UNKNOWN
     Route: 065
  7. DIAZEPAM [Concomitant]
     Indication: PRODUCT USED FOR UNKNOWN INDICATION
     Dosage: 18 MG/DAY
     Route: 065
  8. BETAMETHASONE [Concomitant]
     Indication: PRODUCT USED FOR UNKNOWN INDICATION
     Dosage: 1 MG/DAY
     Route: 065
  9. ACETYLCYSTEINE [Concomitant]
     Indication: PRODUCT USED FOR UNKNOWN INDICATION
     Dosage: 300 MG/DAY
     Route: 065
  10. RISPERIDONE [Suspect]
     Indication: SCHIZOPHRENIA, DISORGANISED TYPE
     Dosage: 4 MG/DAY
     Route: 065
  11. CLOZAPINE [Concomitant]
     Dosage: 800 MG, QD
     Route: 065
  12. VALPROIC ACID [Concomitant]
     Indication: PRODUCT USED FOR UNKNOWN INDICATION
     Dosage: 500 MG/DAY
     Route: 065
  13. CLONAZEPAM [Concomitant]
     Indication: PRODUCT USED FOR UNKNOWN INDICATION
     Dosage: 4.5 MG/DAY
     Route: 065
  14. ARIPIPRAZOLE [Concomitant]
     Indication: PRODUCT USED FOR UNKNOWN INDICATION
     Dosage: UP TO 30 MG/DAY
     Route: 065
  15. HALOPERIDOL [Concomitant]
     Indication: SCHIZOPHRENIA, DISORGANISED TYPE
     Dosage: UNK, UNKNOWN
     Route: 065

REACTIONS (3)
  - SCHIZOPHRENIA, DISORGANISED TYPE [None]
  - SELF INJURIOUS BEHAVIOUR [None]
  - CONDITION AGGRAVATED [None]
